FAERS Safety Report 25867272 (Version 1)
Quarter: 2025Q4

REPORT INFORMATION
  Report Type: Spontaneous
  Country: US (occurrence: US)
  Receive Date: 20251001
  Receipt Date: 20251001
  Transmission Date: 20260117
  Serious: Yes (Hospitalization)
  Sender: AMGEN
  Company Number: US-AMGEN-USASP2025192323

PATIENT
  Sex: Female

DRUGS (1)
  1. BLINCYTO [Suspect]
     Active Substance: BLINATUMOMAB
     Indication: Product used for unknown indication
     Dosage: 35 MICROGRAM, 7 DAY BAG PER DOSING SCHEDULE
     Route: 042
     Dates: start: 202507

REACTIONS (2)
  - Infection [Unknown]
  - Product administration error [Unknown]

NARRATIVE: CASE EVENT DATE: 20250923
